FAERS Safety Report 11414750 (Version 1)
Quarter: 2015Q3

REPORT INFORMATION
  Report Type: Spontaneous
  Country: IT (occurrence: None)
  Receive Date: 20150821
  Receipt Date: 20150821
  Transmission Date: 20151125
  Serious: Yes (Death)
  Sender: FDA-Public Use
  Company Number: KAD201508-002707

PATIENT
  Sex: Male

DRUGS (2)
  1. HARVONI [Concomitant]
     Active Substance: LEDIPASVIR\SOFOSBUVIR
     Dosage: FILM-COATED, TABLET, D, ORAL?
     Route: 048
  2. RIBAVIRIN (RIBAVIRIN) [Suspect]
     Active Substance: RIBAVIRIN

REACTIONS (2)
  - Cardiac disorder [None]
  - Feeling abnormal [None]

NARRATIVE: CASE EVENT DATE: 20150719
